FAERS Safety Report 24567562 (Version 1)
Quarter: 2024Q4

REPORT INFORMATION
  Report Type: Spontaneous
  Country: US (occurrence: US)
  Receive Date: 20241031
  Receipt Date: 20241031
  Transmission Date: 20250114
  Serious: No
  Sender: ABBVIE
  Company Number: US-ABBVIE-5984297

PATIENT

DRUGS (2)
  1. QULIPTA [Suspect]
     Active Substance: ATOGEPANT
     Indication: Product used for unknown indication
     Route: 048
     Dates: end: 20241019
  2. GABAPENTIN [Suspect]
     Active Substance: GABAPENTIN
     Indication: Product used for unknown indication
     Route: 065

REACTIONS (10)
  - Sedation [Unknown]
  - Abdominal pain [Unknown]
  - Nausea [Unknown]
  - Hepatomegaly [Unknown]
  - Postural orthostatic tachycardia syndrome [Unknown]
  - Hepatic enzyme increased [Unknown]
  - Decreased appetite [Unknown]
  - Constipation [Unknown]
  - Neuropathy peripheral [Unknown]
  - Somnolence [Unknown]

NARRATIVE: CASE EVENT DATE: 20241001
